FAERS Safety Report 25131094 (Version 1)
Quarter: 2025Q1

REPORT INFORMATION
  Report Type: Spontaneous
  Country: DE (occurrence: DE)
  Receive Date: 20250327
  Receipt Date: 20250327
  Transmission Date: 20250409
  Serious: Yes (Other)
  Sender: MYLAN
  Company Number: DE-SANDOZ-SDZ2025DE014247

PATIENT
  Sex: Female

DRUGS (6)
  1. TACROLIMUS [Suspect]
     Active Substance: TACROLIMUS
     Indication: Breast cancer
  2. TACROLIMUS [Suspect]
     Active Substance: TACROLIMUS
     Indication: Renal transplant
  3. AZATHIOPRINE [Suspect]
     Active Substance: AZATHIOPRINE
     Indication: Breast cancer
  4. AZATHIOPRINE [Suspect]
     Active Substance: AZATHIOPRINE
     Indication: Renal transplant
  5. KISQALI [Suspect]
     Active Substance: RIBOCICLIB
     Indication: Renal transplant
  6. KISQALI [Suspect]
     Active Substance: RIBOCICLIB
     Indication: Breast cancer

REACTIONS (3)
  - Drug abuse [Unknown]
  - Blood creatine increased [Unknown]
  - Drug level increased [Unknown]
